FAERS Safety Report 14517816 (Version 1)
Quarter: 2018Q1

REPORT INFORMATION
  Report Type: Spontaneous
  Country: US (occurrence: US)
  Receive Date: 20180212
  Receipt Date: 20180212
  Transmission Date: 20180509
  Serious: No
  Sender: FDA-Public Use
  Company Number: US-B.I. PHARMACEUTICALS,INC./RIDGEFIELD-2018-BI-007091

PATIENT
  Sex: Female

DRUGS (1)
  1. JENTADUETO [Suspect]
     Active Substance: LINAGLIPTIN\METFORMIN HYDROCHLORIDE
     Indication: PRODUCT USED FOR UNKNOWN INDICATION
     Dosage: FORM STRENGTH: 2.5 MG / 500 MG;? ADMINISTRATION CORRECT? NR(NOT REPORTED)
     Route: 065
     Dates: start: 201708, end: 201801

REACTIONS (3)
  - Diarrhoea [Unknown]
  - Renal disorder [Unknown]
  - Gastrointestinal disorder [Unknown]
